FAERS Safety Report 9287948 (Version 1)
Quarter: 2013Q2

REPORT INFORMATION
  Report Type: Spontaneous
  Country: US (occurrence: None)
  Receive Date: 20130513
  Receipt Date: 20130513
  Transmission Date: 20140414
  Serious: Yes (Other)
  Sender: FDA-Public Use
  Company Number: None

PATIENT
  Age: 62 Year
  Sex: Male
  Weight: 72.58 kg

DRUGS (2)
  1. FENTANYL PATCH [Suspect]
     Indication: LUNG NEOPLASM MALIGNANT
     Dosage: 100 MCG/HR EVERY 72 HOURS
     Route: 061
     Dates: start: 20130422, end: 20130509
  2. FENTANYL PATCH [Suspect]
     Indication: PAIN
     Dosage: 100 MCG/HR EVERY 72 HOURS
     Route: 061
     Dates: start: 20130422, end: 20130509

REACTIONS (3)
  - Product adhesion issue [None]
  - Product quality issue [None]
  - Inadequate analgesia [None]
